FAERS Safety Report 18082471 (Version 1)
Quarter: 2020Q3

REPORT INFORMATION
  Report Type: Spontaneous
  Country: JP (occurrence: JP)
  Receive Date: 20200728
  Receipt Date: 20200728
  Transmission Date: 20201103
  Serious: Yes (Death)
  Sender: FDA-Public Use
  Company Number: JP-AMNEAL PHARMACEUTICALS-2020-AMRX-02157

PATIENT

DRUGS (2)
  1. CAPECITABINE. [Suspect]
     Active Substance: CAPECITABINE
     Indication: COLORECTAL CANCER STAGE III
     Dosage: 1000 MILLIGRAM/SQ. METER, BID, FOR 14 DAYS FOLLOWED BY A 7?DAYS REST,UP TO 8 CYCLES
     Route: 048
  2. OXALIPLATIN. [Suspect]
     Active Substance: OXALIPLATIN
     Indication: COLORECTAL CANCER STAGE III
     Dosage: 130 MILLIGRAM/SQ. METER ON DAY 1, UP TO 8 CYCLES
     Route: 041

REACTIONS (1)
  - Disseminated intravascular coagulation [Fatal]
